FAERS Safety Report 5149670-3 (Version None)
Quarter: 2006Q4

REPORT INFORMATION
  Report Type: 
  Country: None (occurrence: None)
  Receive Date: 20061113
  Receipt Date: 20060710
  Transmission Date: 20070319
  Serious: No
  Sender: FDA-Public Use
  Company Number: US-GLAXOSMITHKLINE-A0611649A

PATIENT
  Age: 39 Year
  Sex: Female

DRUGS (4)
  1. COREG [Suspect]
     Indication: MITRAL VALVE PROLAPSE
     Dosage: 3.125MG PER DAY
     Route: 048
     Dates: start: 20051001, end: 20060301
  2. MAGNESIUM OXIDE [Concomitant]
  3. MULTI-VITAMIN [Concomitant]
  4. VITAMIN B-12 [Concomitant]

REACTIONS (3)
  - DEPRESSION [None]
  - DYSKINESIA [None]
  - HEADACHE [None]
